FAERS Safety Report 7608958-4 (Version None)
Quarter: 2011Q3

REPORT INFORMATION
  Report Type: 
  Country: None (occurrence: None)
  Receive Date: 20110714
  Receipt Date: 20110707
  Transmission Date: 20111222
  Serious: Yes (Death)
  Sender: FDA-Public Use
  Company Number: JP-GLAXOSMITHKLINE-B0716485A

PATIENT
  Age: 12 Year
  Sex: Male
  Weight: 43 kg

DRUGS (13)
  1. ALKERAN [Suspect]
     Indication: ALLOGENIC BONE MARROW TRANSPLANTATION THERAPY
     Dosage: 70MGM2 PER DAY
     Route: 042
     Dates: start: 20090629, end: 20090629
  2. ALKERAN [Suspect]
     Dosage: 70MGM2 PER DAY
     Route: 042
     Dates: start: 20090706, end: 20090707
  3. KYTRIL [Concomitant]
     Dosage: 6MG PER DAY
     Route: 042
     Dates: start: 20090629, end: 20090708
  4. ZOSYN [Concomitant]
     Dosage: 13.5G PER DAY
     Route: 042
     Dates: start: 20090629, end: 20090716
  5. FUNGUARD [Concomitant]
     Dosage: 40MG PER DAY
     Route: 042
     Dates: start: 20090629, end: 20090721
  6. FLUDARA [Suspect]
     Indication: ALLOGENIC BONE MARROW TRANSPLANTATION THERAPY
     Dosage: 30MGM2 PER DAY
     Dates: start: 20090703, end: 20090708
  7. PROGRAF [Suspect]
     Indication: IMMUNOSUPPRESSANT DRUG THERAPY
     Dosage: .8MG PER DAY
     Dates: start: 20090709, end: 20090903
  8. METHOTREXATE [Concomitant]
     Indication: IMMUNOSUPPRESSANT DRUG THERAPY
     Dosage: 9MG PER DAY
     Dates: start: 20090711, end: 20090711
  9. METHOTREXATE [Concomitant]
     Dosage: 9MG PER DAY
     Dates: start: 20090713, end: 20090713
  10. METHOTREXATE [Concomitant]
     Dosage: 9MG PER DAY
     Dates: start: 20090716, end: 20090716
  11. DENOSINE (GANCYCLOVIR) [Concomitant]
     Dosage: 400MG PER DAY
     Route: 042
     Dates: start: 20090702, end: 20090709
  12. ZYVOX [Concomitant]
     Dosage: 600MG PER DAY
     Route: 042
     Dates: start: 20090629, end: 20090706
  13. ETOPOSIDE [Suspect]
     Indication: ALLOGENIC BONE MARROW TRANSPLANTATION THERAPY
     Dosage: 100MGM2 PER DAY
     Dates: start: 20090706, end: 20090708

REACTIONS (1)
  - SYSTEMIC CANDIDA [None]
